FAERS Safety Report 23570226 (Version 1)
Quarter: 2024Q1

REPORT INFORMATION
  Report Type: Spontaneous
  Country: ES (occurrence: ES)
  Receive Date: 20240227
  Receipt Date: 20240227
  Transmission Date: 20240410
  Serious: Yes (Life-Threatening, Other)
  Sender: FDA-Public Use
  Company Number: None

PATIENT
  Age: 83 Year
  Sex: Female

DRUGS (6)
  1. ISONIAZID\RIFAMPIN [Suspect]
     Active Substance: ISONIAZID\RIFAMPIN
     Indication: Antibiotic prophylaxis
     Dosage: 2 DF, CONT
     Route: 048
     Dates: start: 20240123, end: 20240206
  2. FLUOXETINE HYDROCHLORIDE [Concomitant]
     Active Substance: FLUOXETINE HYDROCHLORIDE
     Dosage: 100 MG, CONT
     Route: 048
     Dates: start: 20191126
  3. BISOPROLOL FUMARATE [Concomitant]
     Active Substance: BISOPROLOL FUMARATE
     Dosage: 1.25 MG, CONT
     Route: 048
     Dates: start: 20130423
  4. ASPIRIN [Concomitant]
     Active Substance: ASPIRIN
     Dosage: 300 MG, CONT
     Route: 048
     Dates: start: 20190520
  5. PAROXETINE HYDROCHLORIDE [Concomitant]
     Active Substance: PAROXETINE HYDROCHLORIDE\PAROXETINE HYDROCHLORIDE ANHYDROUS
     Dosage: 20 MG, CONT
     Route: 048
     Dates: start: 20140526
  6. ALPRAZOLAM [Concomitant]
     Active Substance: ALPRAZOLAM
     Dosage: 2.5 MG, QD
     Route: 048
     Dates: start: 20190903

REACTIONS (3)
  - Intentional self-injury [Recovered/Resolved]
  - Agitation [Recovered/Resolved]
  - Disturbance in social behaviour [Recovered/Resolved]

NARRATIVE: CASE EVENT DATE: 20240127
